FAERS Safety Report 22318988 (Version 1)
Quarter: 2023Q2

REPORT INFORMATION
  Report Type: Spontaneous
  Country: FR (occurrence: FR)
  Receive Date: 20230515
  Receipt Date: 20230515
  Transmission Date: 20230721
  Serious: Yes (Disabling)
  Sender: FDA-Public Use
  Company Number: FR-BAYER-2023A056081

PATIENT
  Sex: Male

DRUGS (1)
  1. CIPROFLOXACIN [Suspect]
     Active Substance: CIPROFLOXACIN
     Dosage: UNK
     Dates: start: 202108

REACTIONS (7)
  - Gait inability [None]
  - Pain in extremity [None]
  - Fatigue [None]
  - Arthralgia [None]
  - Paraesthesia [None]
  - Arthralgia [Recovered/Resolved]
  - Pain in extremity [None]

NARRATIVE: CASE EVENT DATE: 20210101
